FAERS Safety Report 8743795 (Version 5)
Quarter: 2015Q1

REPORT INFORMATION
  Report Type: Report from Study
  Country: BR (occurrence: BR)
  Receive Date: 20120824
  Receipt Date: 20150320
  Transmission Date: 20150721
  Serious: Yes (Other)
  Sender: FDA-Public Use
  Company Number: BR-ROCHE-1101071

PATIENT
  Age: 67 Year
  Sex: Female
  Weight: 70 kg

DRUGS (8)
  1. ATORVASTATIN [Concomitant]
     Active Substance: ATORVASTATIN
  2. RITUXIMAB [Suspect]
     Active Substance: RITUXIMAB
     Indication: RHEUMATOID ARTHRITIS
     Route: 042
     Dates: start: 20121115
  3. GINKGO BILOBA [Concomitant]
     Active Substance: GINKGO
  4. PREDNISONE. [Concomitant]
     Active Substance: PREDNISONE
  5. DIOVAN [Concomitant]
     Active Substance: VALSARTAN
  6. UNO (DICLOFENAC) [Concomitant]
  7. HIDANTAL [Concomitant]
     Active Substance: PHENYTOIN SODIUM
  8. REUQUINOL [Concomitant]
     Active Substance: HYDROXYCHLOROQUINE SULFATE

REACTIONS (14)
  - Dyspnoea [Recovered/Resolved]
  - Headache [Unknown]
  - Dizziness [Unknown]
  - Memory impairment [Unknown]
  - Choking [Unknown]
  - Confusional state [Not Recovered/Not Resolved]
  - Urinary tract infection [Recovered/Resolved]
  - Blood uric acid abnormal [Unknown]
  - Lung disorder [Unknown]
  - Cystitis [Recovered/Resolved]
  - Dengue fever [Unknown]
  - Speech disorder [Recovered/Resolved]
  - Memory impairment [Not Recovered/Not Resolved]
  - Malaise [Not Recovered/Not Resolved]

NARRATIVE: CASE EVENT DATE: 20121115
